FAERS Safety Report 5776480-6 (Version None)
Quarter: 2008Q2

REPORT INFORMATION
  Report Type: 
  Country: None (occurrence: None)
  Receive Date: 20080617
  Receipt Date: 20080617
  Transmission Date: 20081010
  Serious: Yes (Life-Threatening)
  Sender: FDA-Public Use
  Company Number: None

PATIENT
  Age: 29 Year
  Sex: Female
  Weight: 107.5025 kg

DRUGS (3)
  1. IRON DEXTRAN [Suspect]
     Indication: IRON DEFICIENCY ANAEMIA
     Dosage: 25 MG ONCE INTRAVENOUS (NOT OTHERWISE SPECIFIED)
     Route: 042
     Dates: start: 20080206, end: 20080206
  2. NEXIUM [Concomitant]
  3. ZYRTEC [Concomitant]

REACTIONS (2)
  - BURNING SENSATION [None]
  - DYSPNOEA [None]
